FAERS Safety Report 15341322 (Version 2)
Quarter: 2018Q3

REPORT INFORMATION
  Report Type: Spontaneous
  Country: US (occurrence: US)
  Receive Date: 20180831
  Receipt Date: 20180925
  Transmission Date: 20181010
  Serious: Yes (Hospitalization, Other)
  Sender: FDA-Public Use
  Company Number: US-009507513-1808USA011078

PATIENT
  Age: 75 Year
  Sex: Male
  Weight: 124.8 kg

DRUGS (6)
  1. TOLTERODINE [Concomitant]
     Active Substance: TOLTERODINE
     Indication: BLADDER SPASM
  2. ACETAMINOPHEN (+) HYDROCODONE BITARTRATE [Concomitant]
     Active Substance: ACETAMINOPHEN\HYDROCODONE BITARTRATE
     Indication: PAIN
  3. FLUTICASONE. [Concomitant]
     Active Substance: FLUTICASONE
     Indication: SEASONAL ALLERGY
  4. KEYTRUDA [Suspect]
     Active Substance: PEMBROLIZUMAB
     Indication: NEOPLASM MALIGNANT
     Dosage: 200 MG, EVERY 3 WEEKS.
     Route: 042
     Dates: start: 20180703, end: 20180703
  5. ALKA?SELTZER [Concomitant]
     Active Substance: ANHYDROUS CITRIC ACID\ASPIRIN\SODIUM BICARBONATE
     Indication: DYSPEPSIA
  6. LOSARTAN. [Concomitant]
     Active Substance: LOSARTAN
     Indication: HYPERTENSION

REACTIONS (12)
  - Hypervolaemia [Recovered/Resolved]
  - Urinary tract infection [Unknown]
  - Ascites [Not Recovered/Not Resolved]
  - Ventricular extrasystoles [Unknown]
  - Lymphoedema [Unknown]
  - Lymphadenopathy [Unknown]
  - Hepatic cirrhosis [Unknown]
  - Immune-mediated hepatitis [Unknown]
  - Weight increased [Unknown]
  - Atelectasis [Unknown]
  - Pleural effusion [Unknown]
  - Wheezing [Unknown]

NARRATIVE: CASE EVENT DATE: 2018
